FAERS Safety Report 13661414 (Version 1)
Quarter: 2017Q2

REPORT INFORMATION
  Report Type: Spontaneous
  Country: US (occurrence: US)
  Receive Date: 20170616
  Receipt Date: 20170616
  Transmission Date: 20170830
  Serious: No
  Sender: FDA-Public Use
  Company Number: US-US WORLDMEDS, LLC-USW201611-000750

PATIENT
  Sex: Female

DRUGS (22)
  1. MOBIC [Concomitant]
     Active Substance: MELOXICAM
  2. PREDNISONE. [Concomitant]
     Active Substance: PREDNISONE
  3. FOLIC ACID. [Concomitant]
     Active Substance: FOLIC ACID
  4. REMICADE [Concomitant]
     Active Substance: INFLIXIMAB
  5. SALAGEN [Concomitant]
     Active Substance: PILOCARPINE HYDROCHLORIDE
  6. NEXIUM [Concomitant]
     Active Substance: ESOMEPRAZOLE MAGNESIUM
  7. VOLTAREN [Concomitant]
     Active Substance: DICLOFENAC SODIUM
  8. OXYCODONE [Concomitant]
     Active Substance: OXYCODONE
  9. TRAZODONE [Concomitant]
     Active Substance: TRAZODONE HYDROCHLORIDE
  10. APOKYN [Suspect]
     Active Substance: APOMORPHINE HYDROCHLORIDE
     Indication: PARKINSON^S DISEASE
     Dates: start: 20130916
  11. AMITIZA [Concomitant]
     Active Substance: LUBIPROSTONE
  12. CARAFATE [Concomitant]
     Active Substance: SUCRALFATE
  13. LASIX [Concomitant]
     Active Substance: FUROSEMIDE
  14. RESTASIS [Concomitant]
     Active Substance: CYCLOSPORINE
  15. METHOTREXATE. [Concomitant]
     Active Substance: METHOTREXATE
  16. NORTHERA [Concomitant]
     Active Substance: DROXIDOPA
  17. PERCOCET [Concomitant]
     Active Substance: ACETAMINOPHEN\OXYCODONE HYDROCHLORIDE
  18. STALEVO [Concomitant]
     Active Substance: CARBIDOPA\ENTACAPONE\LEVODOPA
  19. REQUIP XL [Concomitant]
     Active Substance: ROPINIROLE HYDROCHLORIDE
  20. LYRICA [Concomitant]
     Active Substance: PREGABALIN
  21. TIGAN [Concomitant]
     Active Substance: TRIMETHOBENZAMIDE HYDROCHLORIDE
  22. POTASSIUM/CHLORIDE [Concomitant]

REACTIONS (3)
  - Yawning [Recovering/Resolving]
  - Blood pressure decreased [Recovered/Resolved]
  - Nausea [Recovered/Resolved]
